FAERS Safety Report 6108096-6 (Version None)
Quarter: 2009Q1

REPORT INFORMATION
  Report Type: 
  Country: None (occurrence: None)
  Receive Date: 20090304
  Receipt Date: 20080310
  Transmission Date: 20090719
  Serious: Yes (Hospitalization)
  Sender: FDA-Public Use
  Company Number: US-000405

PATIENT
  Age: 75 Year
  Sex: Female

DRUGS (1)
  1. ISOVUE-370 [Suspect]
     Indication: COMPUTERISED TOMOGRAM
     Dosage: 85ML QD INTRAVENOUS
     Route: 042
     Dates: start: 20080306, end: 20080306

REACTIONS (2)
  - CARDIAC ARREST [None]
  - DYSPNOEA [None]
